FAERS Safety Report 9370329 (Version 1)
Quarter: 2013Q2

REPORT INFORMATION
  Report Type: Spontaneous
  Country: FR (occurrence: FR)
  Receive Date: 20130626
  Receipt Date: 20130626
  Transmission Date: 20140414
  Serious: Yes (Hospitalization)
  Sender: FDA-Public Use
  Company Number: FR-BRISTOL-MYERS SQUIBB COMPANY-19025543

PATIENT
  Age: 64 Year
  Sex: Male

DRUGS (5)
  1. APROVEL TABS 150 MG [Suspect]
     Indication: HYPERTENSION
     Route: 048
     Dates: start: 2012, end: 201212
  2. COAPROVEL [Suspect]
     Indication: HYPERTENSION
     Dosage: 1DF: IRBESARTAN 150 MG + HYDROCHLOROTHIAZIDE 12.5 MG
     Route: 048
     Dates: end: 20121214
  3. KIDROLASE [Suspect]
     Indication: ACUTE LEUKAEMIA
     Route: 042
     Dates: start: 20111214, end: 20121211
  4. METHOTREXATE [Suspect]
     Indication: ACUTE LEUKAEMIA
     Route: 042
     Dates: start: 20111213
  5. DEXAMETHASONE ACETATE [Concomitant]

REACTIONS (3)
  - Renal failure acute [Not Recovered/Not Resolved]
  - Diabetes mellitus inadequate control [Not Recovered/Not Resolved]
  - Bone marrow failure [Not Recovered/Not Resolved]
